FAERS Safety Report 8539327-0 (Version None)
Quarter: 2012Q3

REPORT INFORMATION
  Report Type: 
  Country: None (occurrence: None)
  Receive Date: 20120726
  Receipt Date: 20111014
  Transmission Date: 20120928
  Serious: No
  Sender: FDA-Public Use
  Company Number: US-ASTRAZENECA-2011SE45102

PATIENT
  Age: 46 Year
  Sex: Female
  Weight: 104.3 kg

DRUGS (13)
  1. CYMBALTA [Concomitant]
     Indication: ARTHRITIS
     Route: 048
     Dates: start: 20090101
  2. SAVELLA [Concomitant]
  3. IBUPROFEN [Concomitant]
     Indication: ARTHRITIS
     Route: 048
     Dates: start: 20110901
  4. SEROQUEL [Suspect]
     Indication: ANXIETY
     Route: 048
     Dates: start: 20090101
  5. KLONOPIN [Concomitant]
     Indication: ANXIETY
     Route: 048
  6. CYMBALTA [Concomitant]
     Indication: FIBROMYALGIA
     Route: 048
     Dates: start: 20090101
  7. SEROQUEL [Suspect]
     Route: 048
     Dates: start: 20090101, end: 20110601
  8. SEROQUEL [Suspect]
     Route: 048
     Dates: start: 20110601
  9. CYMBALTA [Concomitant]
     Indication: ANXIETY
     Route: 048
     Dates: start: 20090101
  10. CYMBALTA [Concomitant]
     Indication: DEPRESSION
     Route: 048
     Dates: start: 20090101
  11. SEROQUEL [Suspect]
     Route: 048
     Dates: start: 20090101, end: 20110601
  12. SEROQUEL [Suspect]
     Route: 048
     Dates: start: 20110601
  13. SEROQUEL [Suspect]
     Indication: DEPRESSION
     Route: 048
     Dates: start: 20090101

REACTIONS (7)
  - EXERCISE TOLERANCE DECREASED [None]
  - FIBROMYALGIA [None]
  - WEIGHT DECREASED [None]
  - MOOD SWINGS [None]
  - DRUG DISPENSING ERROR [None]
  - SLEEP DISORDER DUE TO A GENERAL MEDICAL CONDITION [None]
  - DEPRESSION [None]
